FAERS Safety Report 8556192 (Version 2)
Quarter: 2013Q1

REPORT INFORMATION
  Report Type: Spontaneous
  Country: US (occurrence: None)
  Receive Date: 20120504
  Receipt Date: 20130226
  Transmission Date: 20140127
  Serious: Yes (Hospitalization)
  Sender: FDA-Public Use
  Company Number: DKLU1078863

PATIENT
  Age: 44 Year
  Sex: Female

DRUGS (1)
  1. SABRIL [Suspect]
     Dosage: 250 MG MILLIGRAM(S), 2 IN 1 D, ORAL
     Route: 048
     Dates: start: 201003

REACTIONS (5)
  - PAIN [None]
  - TREMOR [None]
  - FALL [None]
  - Grand mal convulsion [None]
  - Blood disorder [None]
